FAERS Safety Report 5934425-X (Version None)
Quarter: 2008Q4

REPORT INFORMATION
  Report Type: 
  Country: None (occurrence: None)
  Receive Date: 20081027
  Receipt Date: 20081020
  Transmission Date: 20090506
  Serious: Yes (Hospitalization)
  Sender: FDA-Public Use
  Company Number: CHPA2008US18115

PATIENT
  Age: 55 Year
  Sex: Female

DRUGS (1)
  1. BENEFIBER W/WHEAT DEXTRIN (NCH) (WHEAT DEXTRIN) POWDER [Suspect]
     Indication: NUTRITIONAL SUPPORT
     Dosage: 6 TSP, QD, ORAL
     Route: 048
     Dates: start: 20080901

REACTIONS (2)
  - DEHYDRATION [None]
  - INCORRECT DOSE ADMINISTERED [None]
